FAERS Safety Report 7473446-5 (Version None)
Quarter: 2011Q1

REPORT INFORMATION
  Report Type: 
  Country: None (occurrence: None)
  Receive Date: 20110302
  Receipt Date: 20100715
  Transmission Date: 20110831
  Serious: Yes (Other)
  Sender: FDA-Public Use
  Company Number: 163-21880-10071544

PATIENT
  Age: 80 Year
  Sex: Female
  Weight: 71.2147 kg

DRUGS (1)
  1. REVLIMID [Suspect]
     Indication: ANAEMIA
     Dosage: 5 MG, 3 TIMES A WEEK AFTER DIALYSIS
     Dates: start: 20100428

REACTIONS (3)
  - FULL BLOOD COUNT DECREASED [None]
  - BALANCE DISORDER [None]
  - BACK PAIN [None]
